FAERS Safety Report 9562184 (Version 1)
Quarter: 2013Q3

REPORT INFORMATION
  Report Type: Report from Study
  Country: UG (occurrence: UG)
  Receive Date: 20130927
  Receipt Date: 20130927
  Transmission Date: 20140515
  Serious: Yes (Death, Life-Threatening, Hospitalization)
  Sender: FDA-Public Use
  Company Number: UG-009507513-1309GBR011477

PATIENT
  Age: 23 Year
  Sex: Male

DRUGS (8)
  1. RALTEGRAVIR POTASSIUM [Suspect]
     Indication: HIV INFECTION
     Dosage: UNK
     Route: 048
     Dates: start: 20130822, end: 20130915
  2. LAMIVUDINE [Concomitant]
     Indication: HIV INFECTION
     Dosage: UNK
     Route: 048
     Dates: start: 20130822, end: 20130915
  3. ZIDOVUDINE [Concomitant]
     Dosage: UNK
     Dates: start: 20130822, end: 20130915
  4. EFAVIRENZ [Concomitant]
     Dosage: UNK
     Route: 048
     Dates: start: 20130822, end: 20130915
  5. SULFAMETHOXAZOLE (+) TRIMETHOPRIM [Concomitant]
     Dosage: UNK
     Dates: start: 20130218, end: 20130915
  6. RIFAMPIN [Concomitant]
     Dosage: UNK
     Dates: start: 20130422, end: 20130915
  7. ISONIAZID [Concomitant]
     Dosage: UNK
     Route: 048
     Dates: start: 20130422, end: 20130915
  8. ETHAMBUTOL HYDROCHLORIDE [Concomitant]
     Dosage: UNK
     Dates: start: 20130422, end: 20130915

REACTIONS (1)
  - Death [Fatal]
